FAERS Safety Report 21520388 (Version 1)
Quarter: 2022Q4

REPORT INFORMATION
  Report Type: Spontaneous
  Country: US (occurrence: US)
  Receive Date: 20221028
  Receipt Date: 20221028
  Transmission Date: 20230113
  Serious: Yes (Hospitalization)
  Sender: FDA-Public Use
  Company Number: US-ELI_LILLY_AND_COMPANY-US202210011886

PATIENT
  Age: 21 Year
  Sex: Male

DRUGS (9)
  1. ATOMOXETINE HYDROCHLORIDE [Interacting]
     Active Substance: ATOMOXETINE HYDROCHLORIDE
     Indication: Product used for unknown indication
     Dosage: 40 MG, UNKNOWN
     Route: 065
  2. ATOMOXETINE HYDROCHLORIDE [Interacting]
     Active Substance: ATOMOXETINE HYDROCHLORIDE
     Dosage: 60 MG, DAILY
     Route: 065
  3. ATOMOXETINE HYDROCHLORIDE [Interacting]
     Active Substance: ATOMOXETINE HYDROCHLORIDE
     Dosage: 40 UNK
     Route: 065
  4. BUPROPION HYDROCHLORIDE XL [Interacting]
     Active Substance: BUPROPION HYDROCHLORIDE
     Indication: Product used for unknown indication
     Dosage: 150 MG, DAILY
     Route: 065
  5. BUPROPION HYDROCHLORIDE XL [Interacting]
     Active Substance: BUPROPION HYDROCHLORIDE
     Dosage: 300 MG, DAILY
     Route: 065
  6. QUETIAPINE [Concomitant]
     Active Substance: QUETIAPINE
     Indication: Insomnia
     Dosage: 100 MG, EACH EVENING
     Route: 065
  7. QUETIAPINE [Concomitant]
     Active Substance: QUETIAPINE
     Dosage: 400 UNK
     Route: 065
  8. QUETIAPINE [Concomitant]
     Active Substance: QUETIAPINE
     Dosage: 200 UNK
     Route: 065
  9. ALPRAZOLAM [Concomitant]
     Active Substance: ALPRAZOLAM
     Indication: Anxiety
     Dosage: 0.25 MG, PRN
     Route: 065

REACTIONS (13)
  - Toxicity to various agents [Unknown]
  - Sinus tachycardia [Recovered/Resolved]
  - Tongue biting [Recovered/Resolved]
  - Disorientation [Recovered/Resolved]
  - Drooling [Recovered/Resolved]
  - Leukocytosis [Recovered/Resolved]
  - Blood creatine phosphokinase increased [Recovered/Resolved]
  - Manic symptom [Recovered/Resolved]
  - Generalised tonic-clonic seizure [Recovered/Resolved]
  - Psychotic disorder [Unknown]
  - Somnolence [Recovered/Resolved]
  - Transaminases increased [Recovered/Resolved]
  - Drug interaction [Unknown]
